FAERS Safety Report 9491973 (Version 1)
Quarter: 2013Q3

REPORT INFORMATION
  Report Type: Spontaneous
  Country: US (occurrence: US)
  Receive Date: 20130830
  Receipt Date: 20130830
  Transmission Date: 20140515
  Serious: No
  Sender: FDA-Public Use
  Company Number: US-PFIZER INC-2013249937

PATIENT
  Age: 68 Year
  Sex: Female
  Weight: 95.24 kg

DRUGS (2)
  1. LYRICA [Suspect]
     Indication: DIABETIC NEUROPATHY
     Dosage: 100 MG, 3X/DAY
     Route: 048
     Dates: end: 201306
  2. LYRICA [Suspect]
     Indication: NEURALGIA

REACTIONS (8)
  - Fall [Unknown]
  - Foot deformity [Unknown]
  - Accident [Unknown]
  - Neuropathy peripheral [Unknown]
  - Body height decreased [Unknown]
  - Pain [Unknown]
  - Limb discomfort [Unknown]
  - Impaired driving ability [Unknown]
